FAERS Safety Report 7589712-9 (Version None)
Quarter: 2011Q3

REPORT INFORMATION
  Report Type: 
  Country: None (occurrence: None)
  Receive Date: 20110705
  Receipt Date: 20110622
  Transmission Date: 20111222
  Serious: Yes (Hospitalization)
  Sender: FDA-Public Use
  Company Number: US-ELI_LILLY_AND_COMPANY-US201106007255

PATIENT
  Age: 37 Year
  Sex: Male

DRUGS (2)
  1. HUMULIN N [Suspect]
     Indication: TYPE 1 DIABETES MELLITUS
  2. HUMULIN R [Suspect]
     Indication: TYPE 1 DIABETES MELLITUS

REACTIONS (1)
  - DIABETIC COMPLICATION [None]
